FAERS Safety Report 7415298-5 (Version None)
Quarter: 2011Q2

REPORT INFORMATION
  Report Type: 
  Country: None (occurrence: None)
  Receive Date: 20110414
  Receipt Date: 20110408
  Transmission Date: 20111010
  Serious: Yes (Hospitalization)
  Sender: FDA-Public Use
  Company Number: PHHO2010DE03510

PATIENT
  Sex: Female
  Weight: 67 kg

DRUGS (5)
  1. MYFORTIC [Suspect]
     Dosage: UNK
     Route: 048
     Dates: start: 20100228
  2. METHYLPREDNISOLONE [Concomitant]
     Dosage: 24MG
  3. MYFORTIC [Suspect]
     Indication: RENAL TRANSPLANT
     Dosage: 2880 MG, PER DAY
     Route: 048
     Dates: start: 20100211, end: 20100226
  4. SANDIMMUNE [Suspect]
     Indication: RENAL TRANSPLANT
     Dosage: 400 MG, BID
     Route: 048
     Dates: start: 20110211
  5. NO TREATMENT RECEIVED [Suspect]
     Indication: RENAL TRANSPLANT

REACTIONS (6)
  - HYPERTENSIVE CRISIS [None]
  - VOMITING [None]
  - NAUSEA [None]
  - GASTROENTERITIS [None]
  - SYSTOLIC HYPERTENSION [None]
  - POISONING [None]
